FAERS Safety Report 11113537 (Version 2)
Quarter: 2015Q2

REPORT INFORMATION
  Report Type: Spontaneous
  Country: US (occurrence: US)
  Receive Date: 20150514
  Receipt Date: 20150629
  Transmission Date: 20150821
  Serious: Yes (Other)
  Sender: FDA-Public Use
  Company Number: US-PFIZER INC-2015158237

PATIENT
  Age: 65 Year
  Sex: Female
  Weight: 120 kg

DRUGS (8)
  1. LYRICA [Suspect]
     Active Substance: PREGABALIN
     Indication: DIABETIC NEUROPATHY
     Dosage: 300 MG, UNK
     Route: 048
     Dates: start: 20150505
  2. LYRICA [Suspect]
     Active Substance: PREGABALIN
     Dosage: ONLY ONE DOSE (1 CAPSULE OF 300)
     Route: 048
  3. AMLODIPINE BESYLATE. [Concomitant]
     Active Substance: AMLODIPINE BESYLATE
     Dosage: 10 MG, UNK
  4. CRESTOR [Concomitant]
     Active Substance: ROSUVASTATIN CALCIUM
     Dosage: 40 MG, UNK
  5. LYRICA [Suspect]
     Active Substance: PREGABALIN
     Dosage: 300 UNK, 2X/DAY
     Route: 048
     Dates: start: 20150506
  6. LYRICA [Suspect]
     Active Substance: PREGABALIN
     Indication: NERVE INJURY
     Dosage: 75 MG, UNK
     Route: 048
  7. INVOKANA [Concomitant]
     Active Substance: CANAGLIFLOZIN
     Dosage: 40 MG, UNK
  8. IRBESARTAN HCTZ [Concomitant]
     Active Substance: IRBESARTAN
     Dosage: ([HYDROCHLOROTHIAZIDE 12.5 MG]/[IRBESARTAN 300 MG])

REACTIONS (7)
  - Feeling drunk [Unknown]
  - Speech disorder [Unknown]
  - Abasia [Unknown]
  - Drug intolerance [Unknown]
  - Dizziness [Recovered/Resolved]
  - Asthenia [Recovered/Resolved]
  - Hypersomnia [Unknown]

NARRATIVE: CASE EVENT DATE: 20150505
